FAERS Safety Report 4357168-5 (Version None)
Quarter: 2004Q2

REPORT INFORMATION
  Report Type: 
  Country: None (occurrence: None)
  Receive Date: 20040512
  Receipt Date: 20040422
  Transmission Date: 20050107
  Serious: Yes (Other)
  Sender: FDA-Public Use
  Company Number: A03200401283

PATIENT
  Sex: Male

DRUGS (1)
  1. PLAVIX [Suspect]
     Dosage: 75 MG QD - ORAL

REACTIONS (2)
  - EYE DISORDER [None]
  - RETINAL HAEMORRHAGE [None]
